FAERS Safety Report 7560368-4 (Version None)
Quarter: 2011Q2

REPORT INFORMATION
  Report Type: 
  Country: None (occurrence: None)
  Receive Date: 20110621
  Receipt Date: 20110617
  Transmission Date: 20111010
  Serious: Yes (Death, Hospitalization)
  Sender: FDA-Public Use
  Company Number: TR-ABBOTT-11P-161-0732883-00

PATIENT
  Age: 28 Year
  Sex: Male
  Weight: 80 kg

DRUGS (7)
  1. BACTRIM [Concomitant]
     Indication: PRODUCT USED FOR UNKNOWN INDICATION
     Dosage: 4-3200/640MG TABS DAILY
     Route: 042
     Dates: end: 20110602
  2. KOLISTIN SULPHATE [Concomitant]
     Indication: PRODUCT USED FOR UNKNOWN INDICATION
     Dates: end: 20110602
  3. FUNGIZONE [Concomitant]
     Indication: PRODUCT USED FOR UNKNOWN INDICATION
     Route: 042
     Dates: end: 20110602
  4. CLARITHROMYCIN [Concomitant]
     Indication: PRODUCT USED FOR UNKNOWN INDICATION
     Route: 042
     Dates: end: 20110602
  5. AZATHIOPRINE [Concomitant]
     Indication: CROHN'S DISEASE
  6. HUMIRA [Suspect]
     Indication: CROHN'S DISEASE
     Route: 058
     Dates: start: 20100101, end: 20110602
  7. STEROID [Concomitant]
     Indication: PRODUCT USED FOR UNKNOWN INDICATION
     Dates: end: 20110602

REACTIONS (11)
  - TACHYCARDIA [None]
  - HAEMOPTYSIS [None]
  - CROHN'S DISEASE [None]
  - IRRITABLE BOWEL SYNDROME [None]
  - HYPOCAPNIA [None]
  - LUNG INFILTRATION [None]
  - HYPOXIA [None]
  - METABOLIC ACIDOSIS [None]
  - COLITIS [None]
  - CONVULSION [None]
  - TACHYPNOEA [None]
